FAERS Safety Report 12948057 (Version 2)
Quarter: 2018Q2

REPORT INFORMATION
  Report Type: Spontaneous
  Country: GB (occurrence: GB)
  Receive Date: 20161116
  Receipt Date: 20180402
  Transmission Date: 20180711
  Serious: Yes (Death, Hospitalization)
  Sender: FDA-Public Use
  Company Number: GB-JNJFOC-20161114636

PATIENT
  Age: 67 Year
  Sex: Female
  Weight: 57.15 kg

DRUGS (2)
  1. XARELTO [Suspect]
     Active Substance: RIVAROXABAN
     Indication: ATRIAL FIBRILLATION
     Route: 048
  2. FLECAINIDE [Concomitant]
     Active Substance: FLECAINIDE
     Indication: ATRIAL FIBRILLATION
     Route: 065
     Dates: start: 20160813

REACTIONS (3)
  - Headache [Unknown]
  - Subarachnoid haemorrhage [Fatal]
  - Dizziness [Unknown]

NARRATIVE: CASE EVENT DATE: 20160920
